FAERS Safety Report 19491355 (Version 2)
Quarter: 2021Q3

REPORT INFORMATION
  Report Type: Report from Study
  Country: US (occurrence: US)
  Receive Date: 20210705
  Receipt Date: 20210802
  Transmission Date: 20211014
  Serious: No
  Sender: FDA-Public Use
  Company Number: US-BIOVITRUM-2021US6553

PATIENT
  Sex: Female

DRUGS (1)
  1. KINERET [Suspect]
     Active Substance: ANAKINRA
     Indication: PRODUCT USED FOR UNKNOWN INDICATION
     Route: 058
     Dates: start: 20210626

REACTIONS (8)
  - Injection site pain [Unknown]
  - Nausea [Unknown]
  - Injection site erythema [Unknown]
  - Fatigue [Unknown]
  - Sneezing [Unknown]
  - Cough [Unknown]
  - Hypersensitivity [Unknown]
  - Pain [Unknown]
